FAERS Safety Report 10345442 (Version 2)
Quarter: 2014Q3

REPORT INFORMATION
  Report Type: Spontaneous
  Country: US (occurrence: None)
  Receive Date: 20140724
  Receipt Date: 20140807
  Transmission Date: 20150326
  Serious: Yes (Hospitalization)
  Sender: FDA-Public Use
  Company Number: AUR-APL-2014-07835

PATIENT
  Age: 57 Year
  Sex: Female

DRUGS (4)
  1. BUPRENORPHINE (BUPRENORPHINE) [Suspect]
     Active Substance: BUPRENORPHINE
     Indication: PRODUCT USED FOR UNKNOWN INDICATION
  2. MIRTAZAPINE 15MG (MIRTAZAPINE) UNKNOWN, 15MG [Suspect]
     Active Substance: MIRTAZAPINE
     Indication: DEPRESSION
  3. BUPROPION (BUPROPION) [Suspect]
     Active Substance: BUPROPION
     Indication: DEPRESSION
  4. CITALOPRAM (CITALOPRAM) UNKNOWN [Suspect]
     Active Substance: CITALOPRAM HYDROBROMIDE
     Indication: DEPRESSION

REACTIONS (15)
  - Unresponsive to stimuli [None]
  - Confusional state [None]
  - Cerebral vasoconstriction [None]
  - Tachycardia [None]
  - Hyperreflexia [None]
  - Condition aggravated [None]
  - Haemodynamic instability [None]
  - Convulsion [None]
  - Muscle rigidity [None]
  - Cerebrovascular accident [None]
  - Pyrexia [None]
  - Hyperhidrosis [None]
  - Dizziness [None]
  - Decerebrate posture [None]
  - Serotonin syndrome [None]
